FAERS Safety Report 5316239-7 (Version None)
Quarter: 2007Q2

REPORT INFORMATION
  Report Type: 
  Country: None (occurrence: None)
  Receive Date: 20070503
  Receipt Date: 20070405
  Transmission Date: 20071010
  Serious: Yes (Hospitalization)
  Sender: FDA-Public Use
  Company Number: ES-GENENTECH-239735

PATIENT
  Sex: Male

DRUGS (4)
  1. TRASTUZUMAB [Suspect]
     Indication: BLADDER CANCER
     Dosage: 2 MG/KG, 1/WEEK
     Route: 042
     Dates: start: 20061228, end: 20070323
  2. CISPLATIN [Suspect]
     Indication: BLADDER CANCER
     Dates: start: 20061228, end: 20070323
  3. GEMCITABINE [Suspect]
     Indication: BLADDER CANCER
     Dosage: 1000 G/M2, UNK
     Route: 042
     Dates: start: 20061228, end: 20070323
  4. VERAPAMIL [Concomitant]
     Indication: DRUG USE FOR UNKNOWN INDICATION
     Dosage: UNK, UNK

REACTIONS (1)
  - ANGINA PECTORIS [None]
